FAERS Safety Report 24775067 (Version 1)
Quarter: 2024Q4

REPORT INFORMATION
  Report Type: Spontaneous
  Country: FR (occurrence: FR)
  Receive Date: 20241226
  Receipt Date: 20241226
  Transmission Date: 20250115
  Serious: Yes (Hospitalization, Other)
  Sender: BRISTOL-MYERS SQUIBB COMPANY
  Company Number: None

PATIENT
  Age: 40 Year
  Sex: Male
  Weight: 73 kg

DRUGS (2)
  1. NIVOLUMAB [Suspect]
     Active Substance: NIVOLUMAB
     Indication: Metastatic malignant melanoma
     Route: 042
     Dates: start: 20241003, end: 20241114
  2. IPILIMUMAB [Suspect]
     Active Substance: IPILIMUMAB
     Indication: Metastatic malignant melanoma
     Route: 042
     Dates: start: 20241003, end: 20241114

REACTIONS (2)
  - Hepatic cytolysis [Not Recovered/Not Resolved]
  - Cholecystitis acute [Not Recovered/Not Resolved]

NARRATIVE: CASE EVENT DATE: 20241121
